FAERS Safety Report 15926272 (Version 2)
Quarter: 2019Q1

REPORT INFORMATION
  Report Type: Spontaneous
  Country: US (occurrence: US)
  Receive Date: 20190205
  Receipt Date: 20190219
  Transmission Date: 20190417
  Serious: No
  Sender: FDA-Public Use
  Company Number: US-ALLERGAN-1830855US

PATIENT
  Age: 66 Year
  Sex: Male

DRUGS (2)
  1. BOTOX [Suspect]
     Active Substance: ONABOTULINUMTOXINA
     Indication: MIGRAINE
     Dosage: 200 UNITS, SINGLE
     Route: 030
     Dates: start: 201805, end: 201805
  2. BOTOX [Suspect]
     Active Substance: ONABOTULINUMTOXINA
     Dosage: 200 UNITS, SINGLE
     Route: 030
     Dates: start: 201803, end: 201803

REACTIONS (12)
  - Injection site rash [Unknown]
  - Injection site pain [Recovering/Resolving]
  - Inappropriate schedule of product administration [Unknown]
  - Pyrexia [Unknown]
  - Therapeutic response decreased [Unknown]
  - Off label use [Unknown]
  - Injection site pruritus [Recovering/Resolving]
  - Injection site pustule [Unknown]
  - Pruritus [Unknown]
  - Influenza like illness [Unknown]
  - Injection site erythema [Unknown]
  - Headache [Unknown]

NARRATIVE: CASE EVENT DATE: 201805
